APPROVED DRUG PRODUCT: COBICISTAT
Active Ingredient: COBICISTAT
Strength: 150MG
Dosage Form/Route: TABLET;ORAL
Application: A209986 | Product #001
Applicant: MYLAN LABORATORIES LTD
Approved: Feb 7, 2024 | RLD: No | RS: No | Type: DISCN